FAERS Safety Report 8838257 (Version 1)
Quarter: 2012Q4

REPORT INFORMATION
  Report Type: Spontaneous
  Country: US (occurrence: None)
  Receive Date: 20121011
  Receipt Date: 20121011
  Transmission Date: 20130627
  Serious: Yes (Other)
  Sender: FDA-Public Use
  Company Number: None

PATIENT
  Age: 49 Year
  Sex: Female
  Weight: 103.87 kg

DRUGS (1)
  1. GENTAMICIN [Suspect]
     Indication: INFECTION PROPHYLAXIS
     Dosage: 120mg/100ml q8h x 3 doses IV drip
     Route: 041
     Dates: start: 20121009, end: 20121010

REACTIONS (2)
  - Pruritus [None]
  - No therapeutic response [None]
